FAERS Safety Report 8281675-6 (Version None)
Quarter: 2012Q2

REPORT INFORMATION
  Report Type: 
  Country: None (occurrence: None)
  Receive Date: 20120413
  Receipt Date: 20120404
  Transmission Date: 20120825
  Serious: Yes (Other)
  Sender: FDA-Public Use
  Company Number: CA-JNJFOC-20120208516

PATIENT
  Sex: Male
  Weight: 90 kg

DRUGS (2)
  1. ENTOCORT EC [Concomitant]
     Route: 065
  2. REMICADE [Suspect]
     Indication: CROHN'S DISEASE
     Route: 042
     Dates: start: 20110712

REACTIONS (2)
  - SKIN LESION [None]
  - ARTHRALGIA [None]
